FAERS Safety Report 6981029-6 (Version None)
Quarter: 2010Q3

REPORT INFORMATION
  Report Type: 
  Country: None (occurrence: None)
  Receive Date: 20100914
  Receipt Date: 20100906
  Transmission Date: 20110219
  Serious: Yes (Hospitalization)
  Sender: FDA-Public Use
  Company Number: GXKR2010IR10115

PATIENT
  Age: 26 Year
  Sex: Female

DRUGS (1)
  1. PROPRANOLOL [Suspect]
     Dosage: 90 DF, ONCE/SINGLE
     Route: 048

REACTIONS (10)
  - BRADYCARDIA [None]
  - CYANOSIS [None]
  - JOINT DISLOCATION [None]
  - METABOLIC ACIDOSIS [None]
  - OVERDOSE [None]
  - PERIPHERAL COLDNESS [None]
  - RADIAL PULSE DECREASED [None]
  - SALIVARY HYPERSECRETION [None]
  - SHOCK [None]
  - SOMNOLENCE [None]
